FAERS Safety Report 8852270 (Version 1)
Quarter: 2012Q4

REPORT INFORMATION
  Report Type: Spontaneous
  Country: US (occurrence: None)
  Receive Date: 20121017
  Receipt Date: 20121017
  Transmission Date: 20130627
  Serious: Yes (Hospitalization, Other)
  Sender: FDA-Public Use
  Company Number: AUR-APL-2012-04407

PATIENT
  Age: 31 Year
  Sex: Female

DRUGS (4)
  1. LAMOTRIGINE (LAMOTRIGINE) [Suspect]
  2. MESUXIMIDE [Suspect]
  3. PRIMIDONE [Suspect]
  4. VALPROIC ACID [Suspect]

REACTIONS (8)
  - Resting tremor [None]
  - Fall [None]
  - General physical condition abnormal [None]
  - Haemodialysis [None]
  - Nausea [None]
  - Ataxia [None]
  - Somnolence [None]
  - Decreased appetite [None]
